FAERS Safety Report 20080528 (Version 2)
Quarter: 2021Q4

REPORT INFORMATION
  Report Type: Spontaneous
  Country: US (occurrence: US)
  Receive Date: 20211117
  Receipt Date: 20211229
  Transmission Date: 20220304
  Serious: No
  Sender: FDA-Public Use
  Company Number: US-ORGANON-O2111USA001184

PATIENT
  Age: 29 Year
  Sex: Female
  Weight: 116.1 kg

DRUGS (1)
  1. NEXPLANON [Suspect]
     Active Substance: ETONOGESTREL
     Dosage: 1 IMPLANT, DOSE/FREQUENCY : 68 MILLIGRAM, RIGHT UPPER ARM
     Route: 059
     Dates: start: 20210517

REACTIONS (1)
  - Complication associated with device [Not Recovered/Not Resolved]

NARRATIVE: CASE EVENT DATE: 20211001
